FAERS Safety Report 11515688 (Version 2)
Quarter: 2015Q3

REPORT INFORMATION
  Report Type: Spontaneous
  Country: DE (occurrence: DE)
  Receive Date: 20150916
  Receipt Date: 20150929
  Transmission Date: 20151125
  Serious: Yes (Life-Threatening, Hospitalization)
  Sender: FDA-Public Use
  Company Number: DE-ABBVIE-15P-062-1464391-00

PATIENT
  Age: 48 Year
  Weight: 85 kg

DRUGS (9)
  1. QUETIAPINE FUMARATE. [Suspect]
     Active Substance: QUETIAPINE FUMARATE
     Indication: SCHIZOAFFECTIVE DISORDER
     Route: 048
  2. BENPERIDOL [Suspect]
     Active Substance: BENPERIDOL
     Indication: SCHIZOAFFECTIVE DISORDER
     Route: 048
  3. ETOMIDATE. [Concomitant]
     Active Substance: ETOMIDATE
     Indication: PRODUCT USED FOR UNKNOWN INDICATION
  4. BIPERIDEN [Concomitant]
     Active Substance: BIPERIDEN
     Indication: SCHIZOAFFECTIVE DISORDER
  5. CISATRACURIUM. [Concomitant]
     Active Substance: CISATRACURIUM
     Indication: PRODUCT USED FOR UNKNOWN INDICATION
  6. CHLORPROTHIXENE [Suspect]
     Active Substance: CHLORPROTHIXENE
     Indication: SCHIZOAFFECTIVE DISORDER
     Route: 048
  7. VALPROATE SODIUM. [Suspect]
     Active Substance: VALPROATE SODIUM
     Indication: SCHIZOAFFECTIVE DISORDER
     Route: 048
  8. MIDAZOLAM [Concomitant]
     Active Substance: MIDAZOLAM\MIDAZOLAM HYDROCHLORIDE
     Indication: SEDATION
  9. SUFENTANIL [Concomitant]
     Active Substance: SUFENTANIL
     Indication: SEDATION

REACTIONS (19)
  - Blood lactate dehydrogenase increased [Unknown]
  - Blood pressure fluctuation [Unknown]
  - Platelet count decreased [Unknown]
  - Dyspnoea [Unknown]
  - Pyrexia [Recovered/Resolved]
  - Disorientation [Recovered/Resolved]
  - Disturbance in attention [Recovered/Resolved]
  - Hypercapnia [Unknown]
  - C-reactive protein increased [Unknown]
  - Tachycardia [Unknown]
  - Respiratory failure [Recovered/Resolved]
  - Oxygen saturation decreased [Recovered/Resolved]
  - Respiratory acidosis [Unknown]
  - Neuroleptic malignant syndrome [Recovered/Resolved]
  - Blood creatine phosphokinase increased [Recovered/Resolved]
  - Altered state of consciousness [Recovered/Resolved]
  - Hyperhidrosis [Unknown]
  - Procalcitonin increased [Recovered/Resolved]
  - White blood cell count increased [Unknown]
